FAERS Safety Report 23205845 (Version 2)
Quarter: 2023Q4

REPORT INFORMATION
  Report Type: Report from Study
  Country: US (occurrence: US)
  Receive Date: 20231120
  Receipt Date: 20231129
  Transmission Date: 20240109
  Serious: Yes (Congenital Anomaly, Other)
  Sender: FDA-Public Use
  Company Number: US-OTSUKA-2023_029590

PATIENT
  Age: 0 Year
  Sex: Female
  Weight: 2.72 kg

DRUGS (1)
  1. ARIPIPRAZOLE [Suspect]
     Active Substance: ARIPIPRAZOLE
     Indication: Product used for unknown indication
     Dosage: 5 MG
     Route: 064

REACTIONS (14)
  - Ventricular septal defect [Unknown]
  - Patent ductus arteriosus [Unknown]
  - Atrial septal defect [Unknown]
  - Failure to thrive [Not Recovered/Not Resolved]
  - Intraventricular haemorrhage neonatal [Unknown]
  - Brain injury [Unknown]
  - Neonatal dyspnoea [Not Recovered/Not Resolved]
  - Developmental delay [Unknown]
  - Poor feeding infant [Not Recovered/Not Resolved]
  - Agitation neonatal [Unknown]
  - Eye movement disorder [Unknown]
  - Hyperreflexia [Unknown]
  - Akathisia [Unknown]
  - Dysphagia [Not Recovered/Not Resolved]

NARRATIVE: CASE EVENT DATE: 20190915
